FAERS Safety Report 8621933-6 (Version None)
Quarter: 2012Q3

REPORT INFORMATION
  Report Type: 
  Country: None (occurrence: None)
  Receive Date: 20120822
  Receipt Date: 20120822
  Transmission Date: 20120928
  Serious: Yes (Other)
  Sender: FDA-Public Use
  Company Number: None

PATIENT
  Age: 57 Year
  Sex: Male
  Weight: 81.6475 kg

DRUGS (1)
  1. REMODULIN 2.5 [Suspect]
     Indication: PULMONARY ARTERIAL HYPERTENSION
     Dosage: .5.ML DAILY
     Dates: start: 20120711, end: 20120820

REACTIONS (4)
  - MUSCULOSKELETAL PAIN [None]
  - DIARRHOEA [None]
  - CELLULITIS [None]
  - MALAISE [None]
